FAERS Safety Report 14747234 (Version 1)
Quarter: 2018Q2

REPORT INFORMATION
  Report Type: Spontaneous
  Country: US (occurrence: US)
  Receive Date: 20180411
  Receipt Date: 20180411
  Transmission Date: 20180711
  Serious: No
  Sender: FDA-Public Use
  Company Number: US-ALLERGAN-1764395US

PATIENT
  Sex: Female

DRUGS (1)
  1. RISEDRONATE SODIUM - BP [Suspect]
     Active Substance: RISEDRONATE SODIUM
     Indication: OSTEOPOROSIS
     Dosage: UNK
     Route: 065
     Dates: start: 20170904, end: 20170904

REACTIONS (6)
  - Musculoskeletal pain [Recovering/Resolving]
  - Arthralgia [Recovering/Resolving]
  - Pain in extremity [Recovering/Resolving]
  - Myalgia [Recovering/Resolving]
  - Back pain [Recovering/Resolving]
  - Bone pain [Recovering/Resolving]

NARRATIVE: CASE EVENT DATE: 201709
